FAERS Safety Report 13880843 (Version 1)
Quarter: 2017Q3

REPORT INFORMATION
  Report Type: Spontaneous
  Country: KP (occurrence: KP)
  Receive Date: 20170818
  Receipt Date: 20170818
  Transmission Date: 20171127
  Serious: Yes (Death)
  Sender: FDA-Public Use
  Company Number: KP-PFIZER INC-2001085818KP

PATIENT
  Age: 34 Year
  Sex: Female

DRUGS (2)
  1. CYTOTEC [Suspect]
     Active Substance: MISOPROSTOL
     Indication: LABOUR INDUCTION
     Dosage: 100 UG, BID
     Dates: start: 20000215, end: 20000215
  2. OXYTOCIN. [Concomitant]
     Active Substance: OXYTOCIN
     Dosage: UNK
     Dates: start: 20000215

REACTIONS (1)
  - Uterine rupture [Fatal]

NARRATIVE: CASE EVENT DATE: 20000215
